FAERS Safety Report 8715224 (Version 2)
Quarter: 2012Q4

REPORT INFORMATION
  Report Type: 
  Country: CA (occurrence: CA)
  Receive Date: 20120809
  Receipt Date: 20121001
  Transmission Date: 20130627
  Serious: Yes (Other)
  Sender: FDA-Public Use
  Company Number: PHHY2012CA065370

PATIENT
  Age: 34 Year
  Sex: Male

DRUGS (1)
  1. RITALIN-SR [Suspect]
     Dosage: 20 mg, UNK
     Dates: start: 20120716, end: 20120731

REACTIONS (9)
  - Amnesia [Recovering/Resolving]
  - Euphoric mood [Recovering/Resolving]
  - Feeling abnormal [Recovering/Resolving]
  - Abnormal behaviour [Recovering/Resolving]
  - Disturbance in attention [Recovering/Resolving]
  - Depressed mood [Recovering/Resolving]
  - Personality change [Recovering/Resolving]
  - Insomnia [Recovering/Resolving]
  - Drug ineffective [Recovering/Resolving]
